FAERS Safety Report 22538563 (Version 1)
Quarter: 2023Q2

REPORT INFORMATION
  Report Type: Report from Study
  Country: US (occurrence: US)
  Receive Date: 20230609
  Receipt Date: 20230609
  Transmission Date: 20230721
  Serious: Yes (Other)
  Sender: FDA-Public Use
  Company Number: US-002147023-NVSC2023US128088

PATIENT
  Sex: Female
  Weight: 117.91 kg

DRUGS (1)
  1. FLUOCINOLONE [Suspect]
     Active Substance: FLUOCINOLONE
     Indication: Psoriatic arthropathy
     Dosage: UNK
     Route: 065

REACTIONS (11)
  - Psoriatic arthropathy [Unknown]
  - Dactylitis [Unknown]
  - Psoriasis [Unknown]
  - Skin exfoliation [Unknown]
  - Pain of skin [Unknown]
  - Erythema [Unknown]
  - Papule [Unknown]
  - Skin plaque [Unknown]
  - Nail psoriasis [Unknown]
  - Onycholysis [Unknown]
  - Drug ineffective [Unknown]
